FAERS Safety Report 4870175-9 (Version None)
Quarter: 2005Q4

REPORT INFORMATION
  Report Type: 
  Country: None (occurrence: None)
  Receive Date: 20051228
  Receipt Date: 20051216
  Transmission Date: 20060501
  Serious: Yes (Death)
  Sender: FDA-Public Use
  Company Number: 200510638BYL

PATIENT
  Age: 90 Year
  Sex: Female

DRUGS (1)
  1. CIPROFLOXACIN [Suspect]
     Indication: PNEUMONIA
     Dosage: 600 MG, TOTAL DAILY; INTRAVENOUS DRIP
     Route: 041
     Dates: start: 20041117, end: 20041127

REACTIONS (1)
  - CEREBRAL INFARCTION [None]
